FAERS Safety Report 20560483 (Version 15)
Quarter: 2022Q2

REPORT INFORMATION
  Report Type: Spontaneous
  Country: US (occurrence: US)
  Receive Date: 20220307
  Receipt Date: 20220519
  Transmission Date: 20220721
  Serious: Yes (Other)
  Sender: FDA-Public Use
  Company Number: US-ELI_LILLY_AND_COMPANY-US202203001459

PATIENT
  Age: 49 Year
  Sex: Female

DRUGS (19)
  1. ADCIRCA [Suspect]
     Active Substance: TADALAFIL
     Indication: Pulmonary arterial hypertension
     Dosage: UNK UNK, UNKNOWN (DECREASED DOSE)
     Route: 048
  2. ADCIRCA [Suspect]
     Active Substance: TADALAFIL
     Dosage: 40 MG, DAILY
     Route: 048
     Dates: start: 20220211
  3. ADCIRCA [Suspect]
     Active Substance: TADALAFIL
     Dosage: 20 MG, BID
     Route: 048
     Dates: start: 20220212
  4. ADCIRCA [Suspect]
     Active Substance: TADALAFIL
     Dosage: 60 MG, UNKNOWN
     Route: 048
     Dates: start: 202202
  5. TYVASO [Suspect]
     Active Substance: TREPROSTINIL
     Indication: Pulmonary arterial hypertension
     Dosage: 3 DOSAGE FORM, QID (3 BREATHS, QID)
     Route: 055
     Dates: start: 20220224
  6. TYVASO [Suspect]
     Active Substance: TREPROSTINIL
     Dosage: 6 DOSAGE FORM, QID (6 BREATHS QID)
     Route: 055
     Dates: start: 20220224
  7. TYVASO [Suspect]
     Active Substance: TREPROSTINIL
     Dosage: 0.6 MG, UNKNOWN
     Route: 055
     Dates: start: 20220224
  8. TYVASO [Suspect]
     Active Substance: TREPROSTINIL
     Dosage: 0.29 MG, QID
     Route: 055
     Dates: start: 20220224
  9. TYVASO [Suspect]
     Active Substance: TREPROSTINIL
     Dosage: 72 UG, QID (12 BREATHS)
     Route: 055
  10. TYVASO [Suspect]
     Active Substance: TREPROSTINIL
     Dosage: UNK UNK, QID (18 BREATHS)
     Route: 055
     Dates: start: 20220224
  11. TYVASO [Suspect]
     Active Substance: TREPROSTINIL
     Dosage: 20 DOSAGE FORM, QID (20 BREATHS QID)
     Route: 055
     Dates: start: 20220224
  12. TYVASO [Suspect]
     Active Substance: TREPROSTINIL
     Dosage: 108 UG, QID
     Route: 065
     Dates: start: 20220224
  13. TYVASO [Suspect]
     Active Substance: TREPROSTINIL
     Dosage: 12 MG, QID (20 BREATHS),
     Route: 055
     Dates: start: 202203
  14. DIGOXIN [Suspect]
     Active Substance: DIGOXIN
     Indication: Product used for unknown indication
     Dosage: UNK UNK, UNKNOWN
     Route: 065
  15. AMBRISENTAN [Suspect]
     Active Substance: AMBRISENTAN
     Indication: Pulmonary hypertension
     Dosage: 10 MG, DAILY
     Route: 065
     Dates: start: 201702
  16. AMBRISENTAN [Suspect]
     Active Substance: AMBRISENTAN
     Dosage: 10 MG, DAILY
     Route: 065
     Dates: start: 20191022
  17. VELETRI [Suspect]
     Active Substance: EPOPROSTENOL
     Indication: Pulmonary arterial hypertension
     Dosage: 10 NG, UNKNOWN (Q1MINUTE)
     Route: 042
     Dates: start: 20210630
  18. VELETRI [Suspect]
     Active Substance: EPOPROSTENOL
     Dosage: 10 NG, OTHER (Q1MINUTE)
     Route: 042
     Dates: start: 20210701
  19. VELETRI [Suspect]
     Active Substance: EPOPROSTENOL
     Dosage: 13 NG, OTHER (Q1MINUTE)
     Route: 042
     Dates: start: 20210702

REACTIONS (22)
  - Syncope [Unknown]
  - Eczema [Unknown]
  - Pulmonary oedema [Unknown]
  - Chills [Unknown]
  - Aphasia [Unknown]
  - Anxiety [Unknown]
  - Stress [Unknown]
  - Disturbance in attention [Unknown]
  - Throat irritation [Not Recovered/Not Resolved]
  - Muscle spasms [Unknown]
  - Paraesthesia [Unknown]
  - Cough [Unknown]
  - Pruritus [Unknown]
  - Nausea [Recovered/Resolved]
  - Chest discomfort [Not Recovered/Not Resolved]
  - Dizziness [Unknown]
  - Heart rate increased [Not Recovered/Not Resolved]
  - Palpitations [Unknown]
  - Headache [Unknown]
  - Pain in extremity [Unknown]
  - Peripheral swelling [Unknown]
  - Overdose [Unknown]

NARRATIVE: CASE EVENT DATE: 20220201
